FAERS Safety Report 6729779-0 (Version None)
Quarter: 2010Q2

REPORT INFORMATION
  Report Type: 
  Country: None (occurrence: None)
  Receive Date: 20100513
  Receipt Date: 20100503
  Transmission Date: 20101027
  Serious: Yes (Other)
  Sender: FDA-Public Use
  Company Number: B0651945A

PATIENT
  Age: 15 Year
  Sex: Male

DRUGS (2)
  1. AMOXICILLIN AND CLAVULANATE POTASSIUM [Suspect]
     Indication: URINARY TRACT INFECTION
     Dosage: INTRAVENOUS
     Route: 042
  2. MEFENAMIC ACID [Concomitant]

REACTIONS (5)
  - CLOSTRIDIUM DIFFICILE COLITIS [None]
  - CULTURE STOOL POSITIVE [None]
  - ENTEROCOLITIS HAEMORRHAGIC [None]
  - ESCHERICHIA URINARY TRACT INFECTION [None]
  - KLEBSIELLA INFECTION [None]
